FAERS Safety Report 8006281-X (Version None)
Quarter: 2011Q4

REPORT INFORMATION
  Report Type: 
  Country: None (occurrence: None)
  Receive Date: 20111226
  Receipt Date: 20111222
  Transmission Date: 20120403
  Serious: Yes (Death)
  Sender: FDA-Public Use
  Company Number: NL-BRISTOL-MYERS SQUIBB COMPANY-16314213

PATIENT
  Age: 58 Year
  Sex: Male

DRUGS (2)
  1. CETUXIMAB [Suspect]
     Indication: NON-SMALL CELL LUNG CANCER
     Dosage: RECENT DOSE:17AUG09.3300MG TOTAL CUMULATIVE DOSE
     Route: 042
     Dates: start: 20090714
  2. CISPLATIN [Suspect]
     Indication: NON-SMALL CELL LUNG CANCER
     Dosage: RECENT DOSE:18AUG09.264MG TOTAL CUMULATIVE DOSE
     Route: 042
     Dates: start: 20090720

REACTIONS (3)
  - PSEUDOMONAL SEPSIS [None]
  - EMBOLISM [None]
  - ACUTE RESPIRATORY DISTRESS SYNDROME [None]
